FAERS Safety Report 10234289 (Version 2)
Quarter: 2014Q2

REPORT INFORMATION
  Report Type: Spontaneous
  Country: US (occurrence: US)
  Receive Date: 20140612
  Receipt Date: 20140625
  Transmission Date: 20141212
  Serious: Yes (Death)
  Sender: FDA-Public Use
  Company Number: US-FRI-1000068076

PATIENT
  Age: 76 Year
  Sex: Male
  Weight: 82.1 kg

DRUGS (1)
  1. NAMENDA [Suspect]

REACTIONS (1)
  - Death [Fatal]
